FAERS Safety Report 10155801 (Version 1)
Quarter: 2014Q2

REPORT INFORMATION
  Report Type: Spontaneous
  Country: IT (occurrence: IT)
  Receive Date: 20140506
  Receipt Date: 20140506
  Transmission Date: 20141212
  Serious: Yes (Other)
  Sender: FDA-Public Use
  Company Number: ALCN2014IT002685

PATIENT
  Age: 3 Year
  Sex: Male

DRUGS (5)
  1. TOBRADEX [Suspect]
     Indication: POSTOPERATIVE CARE
     Route: 047
  2. TOBRADEX [Suspect]
     Indication: OFF LABEL USE
  3. TOBRADEX [Suspect]
     Indication: POSTOPERATIVE CARE
     Dosage: UNK, TID
     Route: 047
  4. TOBRADEX [Suspect]
     Indication: OFF LABEL USE
  5. ACETAMINOPHEN W/CODEINE [Concomitant]
     Route: 054

REACTIONS (9)
  - Cellulitis orbital [Recovering/Resolving]
  - Pyrexia [Recovering/Resolving]
  - Eyelid ptosis [Recovering/Resolving]
  - Eye pain [Recovering/Resolving]
  - Conjunctival oedema [Recovering/Resolving]
  - Eyelid oedema [Recovering/Resolving]
  - Ocular hyperaemia [Recovering/Resolving]
  - Conjunctival hyperaemia [Recovering/Resolving]
  - Off label use [Unknown]
